FAERS Safety Report 8015691-6 (Version None)
Quarter: 2011Q4

REPORT INFORMATION
  Report Type: 
  Country: None (occurrence: None)
  Receive Date: 20111228
  Receipt Date: 20111228
  Transmission Date: 20120403
  Serious: Yes (Life-Threatening)
  Sender: FDA-Public Use
  Company Number: None

PATIENT
  Sex: Female

DRUGS (1)
  1. ENBREL [Suspect]
     Indication: PSORIASIS
     Dosage: 50MG TWICE WEEKLY SQ
     Route: 058
     Dates: start: 20110125, end: 20111123

REACTIONS (1)
  - CARDIAC FAILURE CONGESTIVE [None]
